FAERS Safety Report 22161395 (Version 2)
Quarter: 2023Q2

REPORT INFORMATION
  Report Type: Spontaneous
  Country: CN (occurrence: None)
  Receive Date: 20230331
  Receipt Date: 20230413
  Transmission Date: 20230722
  Serious: Yes (Hospitalization, Other)
  Sender: FDA-Public Use
  Company Number: 2022A359313

PATIENT
  Age: 77 Year
  Sex: Female

DRUGS (3)
  1. TAGRISSO [Suspect]
     Active Substance: OSIMERTINIB
     Indication: Lung adenocarcinoma
     Dosage: 80 MG AT EACH TIME
     Route: 048
     Dates: start: 202210, end: 20221024
  2. TAGRISSO [Suspect]
     Active Substance: OSIMERTINIB
     Indication: Lung adenocarcinoma
     Dosage: 80 MG AT EACH TIME
     Route: 048
     Dates: start: 20221025
  3. ICOTINIB [Concomitant]
     Active Substance: ICOTINIB

REACTIONS (10)
  - Malignant neoplasm progression [Unknown]
  - Haemoptysis [Recovered/Resolved]
  - Productive cough [Unknown]
  - Chest discomfort [Not Recovered/Not Resolved]
  - Chest discomfort [Recovered/Resolved]
  - Drug resistance [Unknown]
  - Pain [Not Recovered/Not Resolved]
  - Diarrhoea [Not Recovered/Not Resolved]
  - Rash [Not Recovered/Not Resolved]
  - Drug ineffective [Unknown]

NARRATIVE: CASE EVENT DATE: 20221022
